FAERS Safety Report 8586757-7 (Version None)
Quarter: 2012Q3

REPORT INFORMATION
  Report Type: 
  Country: None (occurrence: None)
  Receive Date: 20120810
  Receipt Date: 20120807
  Transmission Date: 20120928
  Serious: Yes (Other)
  Sender: FDA-Public Use
  Company Number: US-PFIZER INC-2012192108

PATIENT
  Age: 50 Year
  Sex: Female

DRUGS (4)
  1. PLAQUENIL [Suspect]
     Dosage: UNK
  2. ENBREL [Suspect]
     Indication: RHEUMATOID ARTHRITIS
     Dosage: 50 MG, QWK
     Dates: start: 20050101
  3. SULFASALAZINE [Suspect]
     Dosage: UNK
  4. METHOTREXATE SODIUM [Concomitant]
     Dosage: 4 MG, QWK
     Dates: start: 20040101

REACTIONS (1)
  - RHEUMATOID ARTHRITIS [None]
